FAERS Safety Report 5809986-1 (Version None)
Quarter: 2008Q3

REPORT INFORMATION
  Report Type: 
  Country: None (occurrence: None)
  Receive Date: 20080715
  Receipt Date: 20080707
  Transmission Date: 20090109
  Serious: Yes (Hospitalization)
  Sender: FDA-Public Use
  Company Number: CG-MERCK-0807USA01084

PATIENT
  Age: 41 Year
  Sex: Female
  Weight: 61 kg

DRUGS (1)
  1. STROMECTOL [Suspect]
     Route: 048
     Dates: start: 20071126, end: 20071126

REACTIONS (3)
  - DIARRHOEA [None]
  - PARESIS [None]
  - PYREXIA [None]
